FAERS Safety Report 5074785-8 (Version None)
Quarter: 2006Q3

REPORT INFORMATION
  Report Type: 
  Country: None (occurrence: None)
  Receive Date: 20060807
  Receipt Date: 20060728
  Transmission Date: 20061208
  Serious: Yes (Hospitalization)
  Sender: FDA-Public Use
  Company Number: 2006-08-0001

PATIENT
  Age: 63 Year
  Sex: Male

DRUGS (1)
  1. TEMOZOLOMIDE CAPSULES [Suspect]
     Indication: ASTROCYTOMA MALIGNANT
     Dosage: 200 MG ORAL
     Route: 048
     Dates: start: 20060406, end: 20060524

REACTIONS (4)
  - CELLULITIS [None]
  - PRODUCTIVE COUGH [None]
  - PURPURA [None]
  - THROMBOCYTOPENIA [None]
